FAERS Safety Report 4381687-9 (Version None)
Quarter: 2004Q2

REPORT INFORMATION
  Report Type: 
  Country: None (occurrence: None)
  Receive Date: 20040615
  Receipt Date: 20040601
  Transmission Date: 20050107
  Serious: Yes (Death)
  Sender: FDA-Public Use
  Company Number: USA-2004-0014789

PATIENT
  Age: 51 Year
  Sex: Female

DRUGS (6)
  1. OXYCONTIN [Suspect]
     Dosage: 80 MG, QID
  2. VALIUM [Suspect]
     Dosage: 10 MG, TID
  3. TRAZODONE HCL [Concomitant]
  4. SOMA [Concomitant]
  5. PROZAC [Concomitant]
  6. PREMARIN [Concomitant]

REACTIONS (1)
  - DEATH [None]
